FAERS Safety Report 11264666 (Version 4)
Quarter: 2015Q3

REPORT INFORMATION
  Report Type: Spontaneous
  Country: US (occurrence: US)
  Receive Date: 20150713
  Receipt Date: 20150916
  Transmission Date: 20151125
  Serious: No
  Sender: FDA-Public Use
  Company Number: US-PFIZER INC-2015228994

PATIENT
  Age: 84 Year
  Sex: Female
  Weight: 69 kg

DRUGS (5)
  1. CALCIUM 1200 [Concomitant]
     Dosage: 1 DF, DAILY
     Dates: start: 1999
  2. AROMASIN [Suspect]
     Active Substance: EXEMESTANE
     Indication: BREAST CANCER METASTATIC
     Dosage: 20 MG, DAILY
     Dates: start: 2010
  3. TRIAMTERENE. [Concomitant]
     Active Substance: TRIAMTERENE
     Indication: HYPERTENSION
     Dosage: 75/50, 1X/DAY
     Dates: start: 1970
  4. METHIMAZOLE. [Concomitant]
     Active Substance: METHIMAZOLE
     Indication: THYROID DISORDER
     Dosage: 5 MG, 1X/DAY
     Dates: start: 1999
  5. VITAMIN D 1000 [Concomitant]
     Dosage: 1 DF, DAILY
     Dates: start: 1999

REACTIONS (2)
  - Cough [Not Recovered/Not Resolved]
  - Condition aggravated [Not Recovered/Not Resolved]
